FAERS Safety Report 10572684 (Version 2)
Quarter: 2014Q4

REPORT INFORMATION
  Report Type: Spontaneous
  Country: US (occurrence: None)
  Receive Date: 20141106
  Receipt Date: 20141125
  Transmission Date: 20150529
  Serious: Yes (Hospitalization)
  Sender: FDA-Public Use
  Company Number: US-H14001-14-01394

PATIENT
  Age: 41 Year
  Sex: Male

DRUGS (6)
  1. TESTOSTERONE CIPIONATE [Suspect]
     Active Substance: TESTOSTERONE
     Indication: PRODUCT USED FOR UNKNOWN INDICATION
     Dosage: 57.1429 MG(400 MG, 1 IN 1 WK),UKNOWN
  2. PROTEIN SHAKES(PROTEIN SUPPLEMENTS) [Concomitant]
  3. METANDIENONE [Suspect]
     Active Substance: METHANDROSTENOLONE
     Indication: PRODUCT USED FOR UNKNOWN INDICATION
     Dosage: 60 MG, ORAL.
     Route: 048
  4. NANDROLONE [Suspect]
     Active Substance: NANDROLONE
     Indication: PRODUCT USED FOR UNKNOWN INDICATION
     Dosage: 114.2857 MG(400 G, 2 IN 1 WK), UKNOWN
  5. IBUPROFEN. [Concomitant]
     Active Substance: IBUPROFEN
  6. SUPPLEMENTS(OTHER THERAPEUTIC PRODUCTS) [Concomitant]

REACTIONS (2)
  - Drug abuse [None]
  - Nephropathy [None]
